FAERS Safety Report 4526520-7 (Version None)
Quarter: 2004Q4

REPORT INFORMATION
  Report Type: 
  Country: None (occurrence: None)
  Receive Date: 20041210
  Receipt Date: 20041129
  Transmission Date: 20050328
  Serious: Yes (Death, Hospitalization)
  Sender: FDA-Public Use
  Company Number: 2004100364

PATIENT
  Age: 13 Year
  Sex: Male

DRUGS (1)
  1. PSEUDOEPHEDRINE (PSEUDOEPHEDRINE) [Suspect]
     Indication: PRIAPISM
     Dosage: 60 MG, NIGHTLY, ORAL
     Route: 048

REACTIONS (17)
  - ACUTE MYOCARDIAL INFARCTION [None]
  - CARDIAC FAILURE [None]
  - CARDIOMEGALY [None]
  - CIRCULATORY COLLAPSE [None]
  - CORONARY ARTERY DISEASE [None]
  - ELECTROMECHANICAL DISSOCIATION [None]
  - EOSINOPHILIA [None]
  - HAEMOGLOBIN DECREASED [None]
  - HYPERPLASIA [None]
  - MYOCARDIAL FIBROSIS [None]
  - MYOCARDIAL ISCHAEMIA [None]
  - PLATELET COUNT INCREASED [None]
  - PULMONARY CONGESTION [None]
  - PULMONARY OEDEMA [None]
  - VENTRICULAR EXTRASYSTOLES [None]
  - VENTRICULAR TACHYCARDIA [None]
  - WHITE BLOOD CELL COUNT INCREASED [None]
